FAERS Safety Report 12517976 (Version 1)
Quarter: 2016Q2

REPORT INFORMATION
  Report Type: Spontaneous
  Country: US (occurrence: US)
  Receive Date: 20160630
  Receipt Date: 20160630
  Transmission Date: 20160815
  Serious: Yes (Hospitalization)
  Sender: FDA-Public Use
  Company Number: PHEH2016US015950

PATIENT
  Age: 35 Year
  Sex: Male

DRUGS (1)
  1. VOTRIENT [Suspect]
     Active Substance: PAZOPANIB HYDROCHLORIDE
     Indication: NEOPLASM MALIGNANT
     Dosage: 800 MG, QD (4 TABLETS)
     Route: 048
     Dates: start: 20160524, end: 20160623

REACTIONS (4)
  - Hair colour changes [Unknown]
  - Cachexia [Unknown]
  - Blister [Unknown]
  - Pallor [Unknown]

NARRATIVE: CASE EVENT DATE: 20160623
